FAERS Safety Report 8480448 (Version 2)
Quarter: 2012Q4

REPORT INFORMATION
  Report Type: 
  Country: BR (occurrence: BR)
  Receive Date: 20120328
  Receipt Date: 20121011
  Transmission Date: 20130627
  Serious: Yes (Other)
  Sender: FDA-Public Use
  Company Number: BR-ASTRAZENECA-2012SE19135

PATIENT
  Age: 76 Year
  Sex: Male
  Weight: 104 kg

DRUGS (11)
  1. ATACAND HCT [Suspect]
     Indication: HYPERTENSION
     Dosage: 16/12.5 MG, DAILY
     Route: 048
     Dates: start: 2009
  2. BRILINTA [Suspect]
     Indication: ANGIOPLASTY
     Route: 048
     Dates: end: 201208
  3. INSULINE [Concomitant]
     Indication: DIABETES MELLITUS
     Route: 058
     Dates: start: 2001
  4. SIMVASTATIN [Concomitant]
     Route: 048
     Dates: start: 2001
  5. MONOCORDIL [Concomitant]
     Route: 048
     Dates: start: 2001
  6. CARVEDILOL [Concomitant]
     Route: 048
     Dates: start: 2001
  7. ALDACTONE [Concomitant]
     Route: 048
     Dates: start: 2001
  8. GLIFAGE [Concomitant]
     Indication: DIABETES MELLITUS
     Route: 048
     Dates: start: 2002
  9. VASTAREL [Concomitant]
     Route: 048
     Dates: start: 2007
  10. CALTREN [Concomitant]
     Route: 048
     Dates: start: 2008
  11. LIPIDIL [Concomitant]
     Route: 048
     Dates: start: 2009

REACTIONS (2)
  - Arterial restenosis [Recovering/Resolving]
  - Anal inflammation [Recovering/Resolving]
